FAERS Safety Report 10948387 (Version 1)
Quarter: 2015Q1

REPORT INFORMATION
  Report Type: Spontaneous
  Country: GB (occurrence: None)
  Receive Date: 20150320
  Receipt Date: 20150320
  Transmission Date: 20150721
  Serious: Yes (Death, Other)
  Sender: FDA-Public Use
  Company Number: 2587836

PATIENT
  Age: 48 Year
  Sex: Male

DRUGS (3)
  1. ETOPOSIDE. [Suspect]
     Active Substance: ETOPOSIDE
     Indication: NEOPLASM MALIGNANT
     Route: 048
     Dates: start: 201409
  2. CLOZAPINE. [Suspect]
     Active Substance: CLOZAPINE
     Indication: PRODUCT USED FOR UNKNOWN INDICATION
     Route: 048
     Dates: start: 20120109, end: 201408
  3. CARBOPLATIN. [Suspect]
     Active Substance: CARBOPLATIN
     Indication: NEOPLASM MALIGNANT
     Dosage: INTRAVENOUS (NOT OTHERWISE SPECIFIED)
     Route: 042
     Dates: start: 201409

REACTIONS (8)
  - Metastases to liver [None]
  - Leukopenia [None]
  - Small cell carcinoma [None]
  - Neutrophil count increased [None]
  - Salivary gland cancer [None]
  - Malignant neoplasm progression [None]
  - Platelet count decreased [None]
  - Neutropenia [None]

NARRATIVE: CASE EVENT DATE: 201409
